FAERS Safety Report 5771260-X (Version None)
Quarter: 2008Q2

REPORT INFORMATION
  Report Type: 
  Country: None (occurrence: None)
  Receive Date: 20080613
  Receipt Date: 20080602
  Transmission Date: 20081010
  Serious: Yes (Other)
  Sender: FDA-Public Use
  Company Number: US-JNJFOC-20080600593

PATIENT
  Age: 96 Year
  Sex: Female

DRUGS (1)
  1. REMICADE [Suspect]
     Indication: PSORIASIS
     Dosage: 5 INFUSIONS ON UNKNOWN DATES
     Route: 042

REACTIONS (1)
  - SQUAMOUS CELL CARCINOMA [None]
